FAERS Safety Report 4762690-3 (Version None)
Quarter: 2005Q3

REPORT INFORMATION
  Report Type: 
  Country: None (occurrence: None)
  Receive Date: 20050907
  Receipt Date: 20050826
  Transmission Date: 20060218
  Serious: Yes (Other)
  Sender: FDA-Public Use
  Company Number: US-GLAXOSMITHKLINE-A0572181A

PATIENT
  Age: 33 Year
  Sex: Male
  Weight: 79 kg

DRUGS (1)
  1. COMMIT [Suspect]
     Route: 002
     Dates: start: 20050818

REACTIONS (3)
  - GINGIVAL BLEEDING [None]
  - GINGIVAL PAIN [None]
  - HAEMORRHAGE [None]
